FAERS Safety Report 4511098-4 (Version None)
Quarter: 2004Q4

REPORT INFORMATION
  Report Type: 
  Country: None (occurrence: None)
  Receive Date: 20041015
  Receipt Date: 20040212
  Transmission Date: 20050328
  Serious: Yes (Hospitalization, Other)
  Sender: FDA-Public Use
  Company Number: 2004002063

PATIENT
  Age: 55 Year
  Sex: Female
  Weight: 156.0374 kg

DRUGS (11)
  1. NEURONTIN [Suspect]
     Indication: NEUROPATHY
     Dosage: ORAL
     Route: 048
     Dates: start: 20030101, end: 20031101
  2. AMITRIPTYLINE HYDROCHLORIDE [Suspect]
     Indication: NEUROPATHY
     Dosage: ORAL
     Route: 048
  3. NAPROXEN [Concomitant]
  4. SPIRONOLACTONE [Concomitant]
  5. ASPIRIN [Concomitant]
  6. FUROSEMIDE [Concomitant]
  7. ALLOPURINOL [Concomitant]
  8. LEVOTHYROXINE SODIUM [Concomitant]
  9. BUMETANIDE [Concomitant]
  10. TRANDOLAPRIL (TRANDOLAPRIL) [Concomitant]
  11. COMBIVENT [Concomitant]

REACTIONS (2)
  - ANAEMIA [None]
  - PAIN [None]
